FAERS Safety Report 14245484 (Version 2)
Quarter: 2017Q4

REPORT INFORMATION
  Report Type: Spontaneous
  Country: US (occurrence: US)
  Receive Date: 20171202
  Receipt Date: 20171214
  Transmission Date: 20180321
  Serious: No
  Sender: FDA-Public Use
  Company Number: US-009507513-1711USA008482

PATIENT
  Sex: Female
  Weight: 90.2 kg

DRUGS (1)
  1. NEXPLANON [Suspect]
     Active Substance: ETONOGESTREL
     Indication: CONTRACEPTION
     Dosage: 1 IMPLANT (STRENGTH: 68 MG), ONCE
     Route: 059
     Dates: start: 20160404, end: 20171117

REACTIONS (2)
  - Implant site fibrosis [Unknown]
  - Device breakage [Recovered/Resolved]
